FAERS Safety Report 15395750 (Version 1)
Quarter: 2018Q3

REPORT INFORMATION
  Report Type: Spontaneous
  Country: US (occurrence: US)
  Receive Date: 20180912
  Receipt Date: 20180912
  Transmission Date: 20181010
  Serious: Yes (Life-Threatening, Disabling, Other)
  Sender: FDA-Public Use
  Company Number: None

PATIENT
  Age: 53 Year
  Sex: Female
  Weight: 81 kg

DRUGS (3)
  1. IMITREX [Concomitant]
     Active Substance: SUMATRIPTAN SUCCINATE
  2. DAILY VITAMINS [Concomitant]
  3. PREDNISONE. [Suspect]
     Active Substance: PREDNISONE
     Indication: BRONCHITIS
     Dosage: ?          QUANTITY:10 TABLET(S);?
     Route: 048
     Dates: start: 20180628, end: 20180702

REACTIONS (7)
  - Crying [None]
  - Blood glucose increased [None]
  - Suicidal ideation [None]
  - Urinary tract infection [None]
  - Candida infection [None]
  - Mental status changes [None]
  - Blood pressure increased [None]

NARRATIVE: CASE EVENT DATE: 20180701
